FAERS Safety Report 17885295 (Version 1)
Quarter: 2020Q2

REPORT INFORMATION
  Report Type: Spontaneous
  Country: US (occurrence: US)
  Receive Date: 20200611
  Receipt Date: 20200611
  Transmission Date: 20200714
  Serious: Yes (Hospitalization)
  Sender: FDA-Public Use
  Company Number: None

PATIENT
  Age: 59 Year
  Sex: Male
  Weight: 112.5 kg

DRUGS (12)
  1. VITAMIN C [Concomitant]
     Active Substance: ASCORBIC ACID
  2. MAGNESIUM [Concomitant]
     Active Substance: MAGNESIUM
  3. CPAP [Concomitant]
     Active Substance: DEVICE
  4. ALPHA LIPOIC ACID [Concomitant]
     Active Substance: .ALPHA.-LIPOIC ACID
  5. ACETYL L-CARNITIEN [Concomitant]
  6. METOPROLOL. [Concomitant]
     Active Substance: METOPROLOL
  7. NP THYROID [Suspect]
     Active Substance: LEVOTHYROXINE\LIOTHYRONINE
     Indication: HYPOTHYROIDISM
     Dosage: ?          QUANTITY:1 TABLET(S);?
     Route: 048
     Dates: start: 20190311, end: 20200609
  8. VITAMIN D3 [Concomitant]
     Active Substance: CHOLECALCIFEROL
  9. COQ10 [Concomitant]
     Active Substance: UBIDECARENONE
  10. METFORMIN [Concomitant]
     Active Substance: METFORMIN HYDROCHLORIDE
  11. FISH OIL [Concomitant]
     Active Substance: FISH OIL
  12. SAW PALMETTO [Concomitant]
     Active Substance: HERBALS\SAW PALMETTO

REACTIONS (1)
  - Arrhythmia [None]

NARRATIVE: CASE EVENT DATE: 20190417
